FAERS Safety Report 4539227-7 (Version None)
Quarter: 2004Q4

REPORT INFORMATION
  Report Type: 
  Country: None (occurrence: None)
  Receive Date: 20041222
  Receipt Date: 20041207
  Transmission Date: 20050328
  Serious: Yes (Death, Hospitalization)
  Sender: FDA-Public Use
  Company Number: CERZ-10730

PATIENT
  Age: 15 Year
  Sex: Female
  Weight: 31 kg

DRUGS (2)
  1. CEREZYME [Suspect]
     Indication: GAUCHER'S DISEASE
     Dosage: 60 U/KG Q2WKS IV
     Route: 042
     Dates: start: 20020821
  2. ALDACTONE [Concomitant]

REACTIONS (4)
  - ASCITES [None]
  - COMA [None]
  - HAEMATEMESIS [None]
  - REFUSAL OF TREATMENT BY PATIENT [None]
